FAERS Safety Report 15154458 (Version 1)
Quarter: 2018Q3

REPORT INFORMATION
  Report Type: Spontaneous
  Country: US (occurrence: US)
  Receive Date: 20180717
  Receipt Date: 20180717
  Transmission Date: 20181010
  Serious: No
  Sender: FDA-Public Use
  Company Number: US-BAYER-2018-133648

PATIENT
  Sex: Female

DRUGS (1)
  1. MIRENA [Suspect]
     Active Substance: LEVONORGESTREL
     Dosage: 20 MCG/24HR, CONT
     Route: 015
     Dates: start: 20130402

REACTIONS (3)
  - Hypomenorrhoea [Not Recovered/Not Resolved]
  - Product use issue [Not Recovered/Not Resolved]
  - Amenorrhoea [Not Recovered/Not Resolved]

NARRATIVE: CASE EVENT DATE: 2013
